FAERS Safety Report 6263716-0 (Version None)
Quarter: 2009Q3

REPORT INFORMATION
  Report Type: 
  Country: None (occurrence: None)
  Receive Date: 20090707
  Receipt Date: 20090707
  Transmission Date: 20100115
  Serious: No
  Sender: FDA-Public Use
  Company Number: None

PATIENT
  Age: 45 Year
  Sex: Female
  Weight: 58.9676 kg

DRUGS (1)
  1. ZICAM GEL SWABS MATTRIX [Suspect]
     Indication: NASOPHARYNGITIS
     Dosage: 20 GEL SWABS PROVIDED IN BOX AS NEEDED NASAL
     Route: 045
     Dates: start: 20071225, end: 20080215

REACTIONS (6)
  - ANOSMIA [None]
  - BRONCHITIS [None]
  - DRUG EFFECT DECREASED [None]
  - DRUG INEFFECTIVE [None]
  - FEELING ABNORMAL [None]
  - MALAISE [None]
